FAERS Safety Report 8252675-7 (Version None)
Quarter: 2012Q2

REPORT INFORMATION
  Report Type: 
  Country: None (occurrence: None)
  Receive Date: 20120402
  Receipt Date: 20110810
  Transmission Date: 20120825
  Serious: No
  Sender: FDA-Public Use
  Company Number: US-ABBOTT-11P-163-0846218-00

PATIENT
  Sex: Male

DRUGS (1)
  1. ANDROGEL [Suspect]
     Indication: BLOOD TESTOSTERONE DECREASED
     Dates: start: 20110101

REACTIONS (5)
  - MUSCLE SPASMS [None]
  - APPLICATION SITE PAIN [None]
  - HOT FLUSH [None]
  - PAIN IN EXTREMITY [None]
  - PAIN [None]
